FAERS Safety Report 5136999-8 (Version None)
Quarter: 2006Q4

REPORT INFORMATION
  Report Type: 
  Country: None (occurrence: None)
  Receive Date: 20061030
  Receipt Date: 20061019
  Transmission Date: 20070319
  Serious: Yes (Other)
  Sender: FDA-Public Use
  Company Number: US-JNJFOC-20061004348

PATIENT
  Sex: Female

DRUGS (11)
  1. INFLIXIMAB [Suspect]
     Indication: RHEUMATOID ARTHRITIS
     Route: 042
  2. HUMIRA [Concomitant]
  3. ARAVA [Concomitant]
  4. CELEBREX [Concomitant]
  5. FUROSEMIDE [Concomitant]
  6. LOTREL [Concomitant]
  7. MULTI-VITAMIN [Concomitant]
  8. TYLENOL [Concomitant]
  9. DARVOCET [Concomitant]
  10. NASONEX [Concomitant]
  11. METANX [Concomitant]

REACTIONS (1)
  - SYSTEMIC LUPUS ERYTHEMATOSUS [None]
